FAERS Safety Report 8767458 (Version 2)
Quarter: 2013Q1

REPORT INFORMATION
  Report Type: Report from Study
  Country: JP (occurrence: JP)
  Receive Date: 20120904
  Receipt Date: 20130325
  Transmission Date: 20140127
  Serious: Yes (Other)
  Sender: FDA-Public Use
  Company Number: JP-VERTEX PHARMACEUTICAL INC.-2012-020275

PATIENT
  Age: 50 Year
  Sex: Male

DRUGS (7)
  1. VX-950 (TELAPREVIR) [Suspect]
     Indication: CHRONIC HEPATITIS C
     Dosage: 2250 MG, QD
     Route: 048
     Dates: start: 20120808, end: 20120810
  2. RIBAVIRIN [Suspect]
     Indication: CHRONIC HEPATITIS C
     Dosage: 800 MG, QD
     Route: 048
     Dates: start: 20120808, end: 20120810
  3. PEGINTERFERON ALFA-2B [Suspect]
     Indication: CHRONIC HEPATITIS C
     Dosage: 1.5 ?G/KG, QW
     Route: 058
     Dates: start: 20120808, end: 20120814
  4. TALION [Concomitant]
     Dosage: UNK
     Route: 048
     Dates: start: 20120808, end: 20120813
  5. SOLDEM 3A [Concomitant]
     Dosage: 500 ML, QD
     Route: 042
     Dates: start: 20120810, end: 20120813
  6. LACTEC [Concomitant]
     Dosage: 500 ML, QD
     Route: 042
     Dates: start: 20120810, end: 20120812
  7. VEEN D [Concomitant]
     Dosage: 500 ML, QD
     Route: 042
     Dates: start: 20120811, end: 20120813

REACTIONS (1)
  - Renal impairment [Recovered/Resolved]
